FAERS Safety Report 14226450 (Version 8)
Quarter: 2018Q2

REPORT INFORMATION
  Report Type: Report from Study
  Country: None (occurrence: SE)
  Receive Date: 20171127
  Receipt Date: 20180601
  Transmission Date: 20180711
  Serious: Yes (Hospitalization)
  Sender: FDA-Public Use
  Company Number: SE-ABBVIE-17K-150-2173923-00

PATIENT
  Age: 68 Year
  Sex: Male
  Weight: 82 kg

DRUGS (6)
  1. DUODOPA [Suspect]
     Active Substance: CARBIDOPA\LEVODOPA
     Dosage: CONTINUOUS DOSE : 3.3 ML/H
     Route: 050
     Dates: end: 20180528
  2. MADOPARK QUICK [Concomitant]
     Active Substance: BENSERAZIDE HYDROCHLORIDE\LEVODOPA
     Indication: PARKINSON^S DISEASE
     Dosage: MAX 6-8 TABLETS DAILY
  3. MADOPARK DEPOT [Concomitant]
     Indication: PARKINSON^S DISEASE
  4. DUODOPA [Suspect]
     Active Substance: CARBIDOPA\LEVODOPA
     Indication: PARKINSON^S DISEASE
     Route: 050
     Dates: start: 20150112, end: 201501
  5. DUODOPA [Suspect]
     Active Substance: CARBIDOPA\LEVODOPA
     Route: 050
     Dates: start: 20150120
  6. DUODOPA [Suspect]
     Active Substance: CARBIDOPA\LEVODOPA
     Dosage: CONTINUOUS DOSE: 3.6 ML/H, MORNING DOSE: 7 ML, EXTRA DOSAGE: 1.2 ML
     Route: 050
     Dates: start: 201805

REACTIONS (21)
  - On and off phenomenon [Unknown]
  - Femur fracture [Recovered/Resolved]
  - Infection [Unknown]
  - Drug effect decreased [Not Recovered/Not Resolved]
  - Hyperkinesia [Unknown]
  - Postoperative wound infection [Recovered/Resolved]
  - Dementia [Unknown]
  - Stoma site infection [Not Recovered/Not Resolved]
  - Depression [Unknown]
  - Hip fracture [Recovering/Resolving]
  - Fall [Recovering/Resolving]
  - Pain [Not Recovered/Not Resolved]
  - Device occlusion [Unknown]
  - Intentional product misuse [Recovered/Resolved]
  - Fall [Recovered/Resolved]
  - Off label use [Recovered/Resolved]
  - Stoma site infection [Recovered/Resolved]
  - Product lot number issue [Unknown]
  - Procedural pain [Not Recovered/Not Resolved]
  - Unintentional medical device removal [Unknown]
  - Musculoskeletal stiffness [Unknown]

NARRATIVE: CASE EVENT DATE: 2015
